FAERS Safety Report 14894152 (Version 1)
Quarter: 2018Q2

REPORT INFORMATION
  Report Type: Spontaneous
  Country: ES (occurrence: ES)
  Receive Date: 20180514
  Receipt Date: 20180514
  Transmission Date: 20180711
  Serious: Yes (Other)
  Sender: FDA-Public Use
  Company Number: ES-BAXTER-2018BAX013713

PATIENT
  Age: 1 Month
  Sex: Female

DRUGS (1)
  1. VIAFLO CLORURO S?DICO 0,9% Y CLORURO POT?SICO 0,3% [Suspect]
     Active Substance: POTASSIUM CHLORIDE\SODIUM CHLORIDE
     Indication: PRODUCT USED FOR UNKNOWN INDICATION
     Dosage: 2 ML OF SODIUM AND 1 ML OF POTASSIUM
     Route: 065
     Dates: start: 20180410

REACTIONS (2)
  - Hypokalaemia [Unknown]
  - Hypernatraemia [Unknown]

NARRATIVE: CASE EVENT DATE: 20180410
